FAERS Safety Report 18363348 (Version 1)
Quarter: 2020Q4

REPORT INFORMATION
  Report Type: Spontaneous
  Country: US (occurrence: US)
  Receive Date: 20201008
  Receipt Date: 20201008
  Transmission Date: 20210114
  Serious: Yes (Other)
  Sender: FDA-Public Use
  Company Number: US-BAXTER-2020BAX020587

PATIENT

DRUGS (1)
  1. PRISMASOL BGK0/2.5 [Suspect]
     Active Substance: ANHYDROUS DEXTROSE\CALCIUM CHLORIDE\LACTIC ACID\MAGNESIUM CHLORIDE\SODIUM BICARBONATE\SODIUM CHLORIDE
     Indication: RENAL REPLACEMENT THERAPY
     Route: 010

REACTIONS (3)
  - Device issue [Unknown]
  - Hypothermia [Recovering/Resolving]
  - Haemodynamic instability [Unknown]

NARRATIVE: CASE EVENT DATE: 20200930
